FAERS Safety Report 10793241 (Version 1)
Quarter: 2015Q1

REPORT INFORMATION
  Report Type: Spontaneous
  Country: DE (occurrence: DE)
  Receive Date: 20150213
  Receipt Date: 20150213
  Transmission Date: 20150721
  Serious: Yes (Congenital Anomaly)
  Sender: FDA-Public Use
  Company Number: DE-ROXANE LABORATORIES, INC.-2015-RO-00232RO

PATIENT
  Age: 1 Day
  Sex: Male
  Weight: 3.31 kg

DRUGS (1)
  1. METHOTREXATE [Suspect]
     Active Substance: METHOTREXATE
     Indication: FOETAL EXPOSURE DURING PREGNANCY
     Route: 064

REACTIONS (4)
  - Maternal drugs affecting foetus [None]
  - Congenital renal disorder [Unknown]
  - Accessory auricle [Unknown]
  - Vesicoureteric reflux [Unknown]
